FAERS Safety Report 4645230-9 (Version None)
Quarter: 2005Q2

REPORT INFORMATION
  Report Type: 
  Country: None (occurrence: None)
  Receive Date: 20050426
  Receipt Date: 20050419
  Transmission Date: 20051028
  Serious: Yes (Death)
  Sender: FDA-Public Use
  Company Number: 2005-UK-00608UK

PATIENT
  Sex: Female

DRUGS (3)
  1. SERETIDE [Suspect]
     Dosage: 2PUFF TWICE PER DAY
     Route: 055
  2. SALBUTAMOL [Suspect]
     Dosage: 2PUFF AS REQUIRED
     Route: 065
  3. SPIRIVA [Suspect]
     Dosage: 18MCG PER DAY

REACTIONS (2)
  - BRONCHITIS ACUTE [None]
  - CHRONIC OBSTRUCTIVE AIRWAYS DISEASE EXACERBATED [None]
